FAERS Safety Report 13659465 (Version 7)
Quarter: 2018Q4

REPORT INFORMATION
  Report Type: Spontaneous
  Country: JP (occurrence: JP)
  Receive Date: 20170616
  Receipt Date: 20181214
  Transmission Date: 20190204
  Serious: Yes (Death, Hospitalization, Other)
  Sender: FDA-Public Use
  Company Number: PHJP2017JP019418

PATIENT
  Age: 72 Year
  Sex: Male
  Weight: 61 kg

DRUGS (8)
  1. ALESION [Concomitant]
     Active Substance: EPINASTINE HYDROCHLORIDE
     Indication: PSORIASIS
     Dosage: 20 MG, QD
     Route: 048
     Dates: start: 20160512
  2. HIRUDOID [Concomitant]
     Active Substance: GLYCOSAMINOGLYCANS
     Indication: PSORIASIS
     Dosage: 1.5 G, UNK
     Route: 061
  3. CLARITIN [Concomitant]
     Active Substance: LORATADINE
     Indication: PSORIASIS
     Dosage: 10 MG, QD
     Route: 048
     Dates: end: 20160511
  4. ANFLAVATE [Concomitant]
     Active Substance: BETAMETHASONE BUTYRATE PROPIONATE
     Indication: PRODUCT USED FOR UNKNOWN INDICATION
     Dosage: UNK
     Route: 065
  5. LULICON [Concomitant]
     Active Substance: LULICONAZOLE
     Indication: SKIN CANDIDA
     Dosage: 1 G, QD
     Route: 061
     Dates: start: 20160512
  6. COSENTYX [Suspect]
     Active Substance: SECUKINUMAB
     Indication: PSORIASIS
     Dosage: 300 MG, QW
     Route: 058
     Dates: start: 20151001, end: 20151030
  7. FEXOFENADINE [Concomitant]
     Active Substance: FEXOFENADINE\FEXOFENADINE HYDROCHLORIDE
     Indication: PSORIASIS
     Dosage: 120 MG, QD
     Route: 048
     Dates: end: 20160511
  8. COSENTYX [Suspect]
     Active Substance: SECUKINUMAB
     Dosage: 300 MG, QMO
     Route: 058
     Dates: start: 20151126, end: 20161123

REACTIONS (6)
  - Lymphadenopathy [Unknown]
  - Mass [Unknown]
  - Skin ulcer [Unknown]
  - Anaplastic large-cell lymphoma [Unknown]
  - Mycosis fungoides [Fatal]
  - Concomitant disease progression [Fatal]

NARRATIVE: CASE EVENT DATE: 201610
